FAERS Safety Report 20859312 (Version 4)
Quarter: 2022Q3

REPORT INFORMATION
  Report Type: Report from Study
  Country: US (occurrence: US)
  Receive Date: 20220523
  Receipt Date: 20220923
  Transmission Date: 20221026
  Serious: Yes (Other)
  Sender: FDA-Public Use
  Company Number: US-NOVARTISPH-NVSC2022US112582

PATIENT
  Age: 52 Year
  Sex: Female

DRUGS (3)
  1. COSENTYX [Suspect]
     Active Substance: SECUKINUMAB
     Indication: Psoriasis
     Dosage: UNK
     Route: 065
     Dates: start: 20220304
  2. COSENTYX [Suspect]
     Active Substance: SECUKINUMAB
     Dosage: 300 MG, QW (QW FOR 5 WEEKS THEN QMO)
     Route: 058
     Dates: start: 20220305
  3. COSENTYX [Suspect]
     Active Substance: SECUKINUMAB
     Dosage: UNK UNK, QMO
     Route: 065

REACTIONS (15)
  - Loss of consciousness [Unknown]
  - Blood pressure increased [Unknown]
  - Anxiety [Unknown]
  - Insomnia [Unknown]
  - Vomiting [Unknown]
  - Diarrhoea [Unknown]
  - Psoriasis [Unknown]
  - Pruritus [Unknown]
  - Dizziness [Unknown]
  - Erythema [Unknown]
  - Rash [Unknown]
  - Arthritis [Unknown]
  - Arthralgia [Unknown]
  - Inappropriate schedule of product administration [Unknown]
  - Drug ineffective [Unknown]

NARRATIVE: CASE EVENT DATE: 20220325
